FAERS Safety Report 6679412-1 (Version None)
Quarter: 2010Q2

REPORT INFORMATION
  Report Type: 
  Country: None (occurrence: None)
  Receive Date: 20100413
  Receipt Date: 20100402
  Transmission Date: 20101027
  Serious: Yes (Hospitalization)
  Sender: FDA-Public Use
  Company Number: US-ROCHE-695800

PATIENT

DRUGS (1)
  1. BLINDED BEVACIZUMAB [Suspect]
     Indication: BREAST CANCER
     Dosage: OVER 30-90 MIN ON DAY 01; LAST DOSE PRIOR TO SAE: 10 NOVEMBER 2009
     Route: 042
     Dates: start: 20090929

REACTIONS (1)
  - CHEST PAIN [None]
